FAERS Safety Report 10982120 (Version 1)
Quarter: 2015Q2

REPORT INFORMATION
  Report Type: Spontaneous
  Country: US (occurrence: US)
  Receive Date: 20150403
  Receipt Date: 20150403
  Transmission Date: 20150821
  Serious: Yes (Other)
  Sender: FDA-Public Use
  Company Number: US-ROCHE-648755

PATIENT
  Age: 79 Year
  Sex: Female

DRUGS (1)
  1. BEVACIZUMAB [Suspect]
     Active Substance: BEVACIZUMAB
     Indication: AGE-RELATED MACULAR DEGENERATION
     Dosage: 1.25 MG, UNK
     Route: 050

REACTIONS (1)
  - Tachyphylaxis [Unknown]
